FAERS Safety Report 5735209-8 (Version None)
Quarter: 2008Q2

REPORT INFORMATION
  Report Type: 
  Country: None (occurrence: None)
  Receive Date: 20080512
  Receipt Date: 20080317
  Transmission Date: 20081010
  Serious: No
  Sender: FDA-Public Use
  Company Number: US-ABBOTT-08P-163-0440548-00

PATIENT
  Age: 35 Year
  Sex: Female

DRUGS (7)
  1. KALETRA [Suspect]
     Indication: ANTIRETROVIRAL THERAPY
     Route: 048
     Dates: start: 20070913
  2. LAMIVUDINE + ZIDOVUDINE [Suspect]
     Indication: ANTIRETROVIRAL THERAPY
     Route: 048
  3. EFAVIRENZ [Suspect]
     Indication: ANTIRETROVIRAL THERAPY
     Route: 048
     Dates: end: 20070627
  4. NELFINAVIR [Suspect]
     Indication: ANTIRETROVIRAL THERAPY
     Route: 048
     Dates: start: 20070627, end: 20070627
  5. ATORVASTATIN [Suspect]
     Indication: ANTIRETROVIRAL THERAPY
  6. ZIDOVUDINE [Concomitant]
     Indication: ANTIRETROVIRAL THERAPY
     Route: 042
     Dates: start: 20080101, end: 20080101
  7. FOLATE SUPPLEMENT [Concomitant]
     Indication: DRUG USE FOR UNKNOWN INDICATION

REACTIONS (1)
  - GESTATIONAL DIABETES [None]
